FAERS Safety Report 6681231-7 (Version None)
Quarter: 2010Q2

REPORT INFORMATION
  Report Type: 
  Country: None (occurrence: None)
  Receive Date: 20100414
  Receipt Date: 20091111
  Transmission Date: 20101027
  Serious: No
  Sender: FDA-Public Use
  Company Number: US-KINGPHARMUSA00001-K200901442

PATIENT
  Sex: Female

DRUGS (2)
  1. SKELAXIN [Suspect]
     Indication: SCIATICA
     Dosage: 800 MG, QD
     Route: 048
     Dates: start: 20091101
  2. SKELAXIN [Suspect]
     Indication: MUSCLE SPASMS

REACTIONS (2)
  - CONSTIPATION [None]
  - SOMNOLENCE [None]
